FAERS Safety Report 5926377-3 (Version None)
Quarter: 2008Q4

REPORT INFORMATION
  Report Type: 
  Country: None (occurrence: None)
  Receive Date: 20081022
  Receipt Date: 20081016
  Transmission Date: 20090506
  Serious: Yes (Death, Hospitalization)
  Sender: FDA-Public Use
  Company Number: US-TEVA-177710USA

PATIENT
  Sex: Male

DRUGS (7)
  1. CLOZAPINE [Suspect]
     Indication: SCHIZOPHRENIA
     Route: 048
     Dates: start: 20071201
  2. SIMVASTATIN [Concomitant]
  3. FENOFIBRATE [Concomitant]
  4. GLIPIZIDE [Concomitant]
  5. ROSIGLITAZONE MALEATE [Concomitant]
  6. MEMANTINE HCL [Concomitant]
  7. DONEPEZIL HCL [Concomitant]

REACTIONS (5)
  - ACUTE RESPIRATORY FAILURE [None]
  - HYPERCAPNIA [None]
  - HYPOXIA [None]
  - PNEUMONIA STAPHYLOCOCCAL [None]
  - STAPHYLOCOCCAL SEPSIS [None]
